FAERS Safety Report 8429100 (Version 7)
Quarter: 2012Q4

REPORT INFORMATION
  Report Type: 
  Country: US (occurrence: US)
  Receive Date: 20120227
  Receipt Date: 20120926
  Transmission Date: 20130627
  Serious: Yes (Hospitalization, Disabling, Other)
  Sender: FDA-Public Use
  Company Number: US-009507513-1202USA03507

PATIENT

DRUGS (6)
  1. FOSAMAX [Suspect]
     Indication: OSTEOPOROSIS
     Dosage: 70 mg, UNK
     Route: 048
     Dates: start: 1995, end: 200907
  2. FOSAMAX [Suspect]
     Indication: OSTEOPENIA
  3. MK-9278 [Concomitant]
     Dates: start: 1992
  4. FOSAMAX PLUS D [Suspect]
     Indication: OSTEOPOROSIS
     Route: 048
  5. FOSAMAX PLUS D [Suspect]
     Indication: OSTEOPENIA
  6. PRILOSEC [Concomitant]
     Dates: start: 2007

REACTIONS (45)
  - Anxiety [Unknown]
  - Joint crepitation [Unknown]
  - Iron deficiency anaemia [Unknown]
  - Depression [Unknown]
  - Tooth disorder [Unknown]
  - Scoliosis [Unknown]
  - Migraine [Unknown]
  - Rhinitis allergic [Unknown]
  - Sinus headache [Unknown]
  - Onychomycosis [Unknown]
  - Cholelithiasis [Unknown]
  - Intervertebral disc degeneration [Not Recovered/Not Resolved]
  - Large intestine polyp [Unknown]
  - Hypertension [Unknown]
  - Back disorder [Unknown]
  - Insomnia [Unknown]
  - Carpal tunnel syndrome [Unknown]
  - Hernia [Unknown]
  - Bursitis [Unknown]
  - Radiculopathy [Unknown]
  - Impaired healing [Unknown]
  - Spinal osteoarthritis [Unknown]
  - Arachnoiditis [Unknown]
  - Vertebral foraminal stenosis [Unknown]
  - Anaemia [Unknown]
  - Hypercholesterolaemia [Unknown]
  - Rotator cuff syndrome [Unknown]
  - Osteoarthritis [Not Recovered/Not Resolved]
  - Muscle strain [Unknown]
  - Limb injury [Unknown]
  - Fall [Unknown]
  - Skin ulcer [Unknown]
  - Cellulitis [Recovered/Resolved]
  - Abscess drainage [Unknown]
  - Joint dislocation [Unknown]
  - Bunion [Recovered/Resolved]
  - Constipation [Unknown]
  - Oedema peripheral [Unknown]
  - Pain in jaw [Unknown]
  - Gastrooesophageal reflux disease [Unknown]
  - Low turnover osteopathy [Not Recovered/Not Resolved]
  - Femur fracture [Not Recovered/Not Resolved]
  - Gastrointestinal surgery [Unknown]
  - Pelvic fracture [Unknown]
  - Haemorrhagic anaemia [Unknown]
